FAERS Safety Report 10155419 (Version 1)
Quarter: 2014Q2

REPORT INFORMATION
  Report Type: Spontaneous
  Country: US (occurrence: US)
  Receive Date: 20140506
  Receipt Date: 20140506
  Transmission Date: 20141212
  Serious: No
  Sender: FDA-Public Use
  Company Number: US-009507513-2012SP004261

PATIENT
  Sex: Male
  Weight: 18.14 kg

DRUGS (3)
  1. CLARITIN ORAL SOLUTION [Suspect]
     Indication: HYPERSENSITIVITY
     Dosage: 5 MG, QD
     Route: 048
     Dates: start: 20120111, end: 20120112
  2. CLARITIN ORAL SOLUTION [Suspect]
     Indication: MEDICAL OBSERVATION
  3. VITAMINS (UNSPECIFIED) [Concomitant]

REACTIONS (1)
  - Product tampering [Unknown]
